FAERS Safety Report 18930196 (Version 2)
Quarter: 2021Q1

REPORT INFORMATION
  Report Type: Spontaneous
  Country: GB (occurrence: GB)
  Receive Date: 20210223
  Receipt Date: 20210326
  Transmission Date: 20210420
  Serious: Yes (Hospitalization, Other)
  Sender: FDA-Public Use
  Company Number: GB-VERTEX PHARMACEUTICALS-2021-002833

PATIENT
  Sex: Male

DRUGS (8)
  1. KALYDECO [Suspect]
     Active Substance: IVACAFTOR
     Indication: CYSTIC FIBROSIS
     Dosage: 150 MG IVACAFTOR PM
     Route: 048
     Dates: start: 202010
  2. PULMOZYME [Concomitant]
     Active Substance: DORNASE ALFA
  3. LAMOTRIGINE. [Concomitant]
     Active Substance: LAMOTRIGINE
     Indication: FALL
     Dosage: 50 MILLIGRAM
  4. LAMOTRIGINE. [Concomitant]
     Active Substance: LAMOTRIGINE
     Indication: EPILEPSY
  5. BRAMITOB [Concomitant]
     Active Substance: TOBRAMYCIN
  6. LAMOTRIGINE. [Concomitant]
     Active Substance: LAMOTRIGINE
     Indication: DISSOCIATIVE AMNESIA
  7. LAMOTRIGINE. [Concomitant]
     Active Substance: LAMOTRIGINE
     Indication: HEAD INJURY
     Dosage: 75 MILLIGRAM, BID
  8. KAFTRIO [Suspect]
     Active Substance: ELEXACAFTOR\IVACAFTOR\TEZACAFTOR
     Indication: CYSTIC FIBROSIS
     Dosage: 2 TABS (75 MG IVACAFTOR/ 50 MG TEZACAFTOR/ 100 MG ELEXACAFTOR) AM
     Route: 048
     Dates: start: 202010

REACTIONS (4)
  - Head injury [Recovering/Resolving]
  - Seizure [Recovering/Resolving]
  - Fall [Recovered/Resolved]
  - Dissociative amnesia [Recovering/Resolving]

NARRATIVE: CASE EVENT DATE: 20210128
